FAERS Safety Report 21849430 (Version 1)
Quarter: 2023Q1

REPORT INFORMATION
  Report Type: Spontaneous
  Country: US (occurrence: US)
  Receive Date: 20230111
  Receipt Date: 20230111
  Transmission Date: 20230418
  Serious: No
  Sender: FDA-Public Use
  Company Number: US-PFIZER INC-PV202300006108

PATIENT
  Age: 81 Year
  Sex: Female

DRUGS (1)
  1. LORBRENA [Suspect]
     Active Substance: LORLATINIB
     Dosage: UNK
     Dates: start: 20221008

REACTIONS (5)
  - Respiratory tract congestion [Unknown]
  - Erythema [Unknown]
  - Dyspnoea [Unknown]
  - Peripheral swelling [Unknown]
  - Amnesia [Unknown]
